FAERS Safety Report 13040343 (Version 1)
Quarter: 2016Q4

REPORT INFORMATION
  Report Type: Spontaneous
  Country: US (occurrence: US)
  Receive Date: 20161219
  Receipt Date: 20161219
  Transmission Date: 20170207
  Serious: Yes (Other)
  Sender: FDA-Public Use
  Company Number: US-AMGEN-USASP2016176410

PATIENT
  Age: 75 Year
  Sex: Male

DRUGS (2)
  1. XGEVA [Suspect]
     Active Substance: DENOSUMAB
     Dosage: UNK
     Route: 065
     Dates: start: 201608, end: 20161103
  2. XGEVA [Suspect]
     Active Substance: DENOSUMAB
     Indication: PROSTATE CANCER
     Dosage: 120 MG, QMO
     Route: 065
     Dates: start: 201203

REACTIONS (6)
  - Sensitivity of teeth [Unknown]
  - Toothache [Unknown]
  - Drug dose omission [Unknown]
  - Tooth fracture [Unknown]
  - Metastases to bone [Unknown]
  - Tooth extraction [Unknown]

NARRATIVE: CASE EVENT DATE: 201603
